FAERS Safety Report 14716916 (Version 1)
Quarter: 2018Q2

REPORT INFORMATION
  Report Type: Spontaneous
  Country: US (occurrence: US)
  Receive Date: 20180404
  Receipt Date: 20180404
  Transmission Date: 20180711
  Serious: Yes (Other)
  Sender: FDA-Public Use
  Company Number: US-SA-2018SA067802

PATIENT
  Age: 27 Year
  Sex: Female

DRUGS (3)
  1. IVACAFTOR [Interacting]
     Active Substance: IVACAFTOR
     Indication: CYSTIC FIBROSIS
     Route: 065
  2. RIFAMPICIN [Suspect]
     Active Substance: RIFAMPIN
     Indication: STAPHYLOCOCCAL INFECTION
     Route: 065
  3. DOXYCYCLINE. [Concomitant]
     Active Substance: DOXYCYCLINE
     Indication: STAPHYLOCOCCAL INFECTION
     Route: 065

REACTIONS (8)
  - Drug interaction [Unknown]
  - Weight decreased [Recovering/Resolving]
  - Productive cough [Recovering/Resolving]
  - Condition aggravated [Unknown]
  - Infective pulmonary exacerbation of cystic fibrosis [Recovering/Resolving]
  - Forced expiratory flow decreased [Recovering/Resolving]
  - Dyspnoea [Recovering/Resolving]
  - Abdominal pain [Unknown]
